FAERS Safety Report 5893863-4 (Version None)
Quarter: 2008Q3

REPORT INFORMATION
  Report Type: 
  Country: None (occurrence: None)
  Receive Date: 20080923
  Receipt Date: 20071113
  Transmission Date: 20090109
  Serious: No
  Sender: FDA-Public Use
  Company Number: US-ASTRAZENECA-2007UW26347

PATIENT
  Age: 36 Year
  Sex: Female
  Weight: 86.2 kg

DRUGS (4)
  1. SEROQUEL XR [Suspect]
     Indication: BIPOLAR DISORDER
     Route: 048
     Dates: start: 20071001
  2. DEPAKOTE [Concomitant]
  3. FLUOXETINE [Concomitant]
  4. ALBUTEROL [Concomitant]

REACTIONS (1)
  - TINNITUS [None]
